FAERS Safety Report 12995098 (Version 1)
Quarter: 2016Q4

REPORT INFORMATION
  Report Type: Spontaneous
  Country: FR (occurrence: FR)
  Receive Date: 20161202
  Receipt Date: 20161202
  Transmission Date: 20170207
  Serious: Yes (Other)
  Sender: FDA-Public Use
  Company Number: FR-JNJFOC-20161129019

PATIENT
  Age: 55 Year
  Sex: Female

DRUGS (1)
  1. SIMPONI [Suspect]
     Active Substance: GOLIMUMAB
     Indication: PSORIATIC ARTHROPATHY
     Route: 058
     Dates: start: 201307

REACTIONS (9)
  - Breast operation [Unknown]
  - Injection site pain [Unknown]
  - Breast mass [Not Recovered/Not Resolved]
  - Therapeutic response decreased [Unknown]
  - Post procedural infection [Recovered/Resolved]
  - Syringe issue [Unknown]
  - Off label use [Unknown]
  - Product use issue [Unknown]
  - Breast necrosis [Not Recovered/Not Resolved]

NARRATIVE: CASE EVENT DATE: 201307
